FAERS Safety Report 8512270 (Version 2)
Quarter: 2013Q1

REPORT INFORMATION
  Report Type: Spontaneous
  Country: US (occurrence: US)
  Receive Date: 20120413
  Receipt Date: 20130102
  Transmission Date: 20140127
  Serious: Yes (Other)
  Sender: FDA-Public Use
  Company Number: US-ASTRAZENECA-2011SE29391

PATIENT
  Age: 49 Year
  Sex: Female

DRUGS (2)
  1. NEXIUM [Suspect]
     Route: 048
  2. ABILIFY [Concomitant]

REACTIONS (6)
  - Ovarian cyst [Unknown]
  - Diabetes mellitus [Unknown]
  - Hypertension [Unknown]
  - Respiratory tract infection viral [Unknown]
  - Headache [Unknown]
  - Abdominal discomfort [Unknown]
